FAERS Safety Report 16170898 (Version 1)
Quarter: 2019Q2

REPORT INFORMATION
  Report Type: Spontaneous
  Country: US (occurrence: US)
  Receive Date: 20190408
  Receipt Date: 20190408
  Transmission Date: 20190711
  Serious: Yes (Other)
  Sender: FDA-Public Use
  Company Number: US-ROCHE-2295910

PATIENT
  Sex: Male

DRUGS (19)
  1. AVASTIN [Suspect]
     Active Substance: BEVACIZUMAB
     Dosage: FOLFOX - AVASTIN EVERY 2-3 WEEKS
     Route: 065
     Dates: start: 201805, end: 201811
  2. FOLINIC ACID [Concomitant]
     Active Substance: LEUCOVORIN
     Indication: COLON CANCER
     Dosage: FOLFOX/AVASTIN FOR 6 MONTHS
     Route: 065
     Dates: start: 2014
  3. FOLINIC ACID [Concomitant]
     Active Substance: LEUCOVORIN
     Dosage: HIPEC SURGERY - FOLFURI- AVASTIN 3 MONTHS, NO
     Route: 065
     Dates: start: 201702, end: 2017
  4. FLUOROURACIL. [Concomitant]
     Active Substance: FLUOROURACIL
     Dosage: FOLFURI - AVASTIN FOR 3 MONTHS
     Route: 065
     Dates: start: 201610, end: 2017
  5. AVASTIN [Suspect]
     Active Substance: BEVACIZUMAB
     Dosage: HIPEC SURGERY - FOLFURI- AVASTIN 3 MONTHS
     Route: 065
     Dates: start: 201702, end: 2017
  6. AVASTIN [Suspect]
     Active Substance: BEVACIZUMAB
     Indication: COLON CANCER
     Dosage: FOLFOX/AVASTIN 6 MONTHS
     Route: 065
     Dates: start: 2014
  7. FOLINIC ACID [Concomitant]
     Active Substance: LEUCOVORIN
     Dosage: FOLFOX - AVASTIN EVERY 2-3 WEEKS, ONGOING : NO
     Route: 065
     Dates: start: 201805, end: 201811
  8. OXALIPLATIN. [Concomitant]
     Active Substance: OXALIPLATIN
     Indication: COLON CANCER
     Dosage: FOLFOX/AVASTIN FOR 6 MONTHS
     Route: 065
     Dates: start: 2014
  9. IRINOTECAN [Concomitant]
     Active Substance: IRINOTECAN
     Dosage: FOLFURI - AVASTIN FOR 3 MONTHS
     Route: 065
     Dates: start: 201610, end: 2017
  10. IRINOTECAN [Concomitant]
     Active Substance: IRINOTECAN
     Dosage: HIPEC SURGERY FOLFURI AVASTIN 3 MONTHS
     Route: 065
     Dates: start: 201702, end: 2017
  11. FLUOROURACIL. [Concomitant]
     Active Substance: FLUOROURACIL
     Dosage: HIPEC SURGERY - FOLFURI- AVASTIN 3 MONTHS
     Route: 065
     Dates: start: 201702, end: 2017
  12. OXALIPLATIN. [Concomitant]
     Active Substance: OXALIPLATIN
     Dosage: FOLFOX - AVASTIN EVERY 2-3 WEEKS, NO
     Route: 065
     Dates: start: 201805, end: 201811
  13. AVASTIN [Suspect]
     Active Substance: BEVACIZUMAB
     Dosage: FOLFURI - AVASTIN FOR 3 MONTHS
     Route: 065
     Dates: start: 201610, end: 2017
  14. VECTIBIX [Concomitant]
     Active Substance: PANITUMUMAB
     Indication: COLON CANCER
     Dosage: VECTIBIX WITH IRINOTECAN - 4 TREATMENTS
     Route: 065
     Dates: start: 201803, end: 2018
  15. IRINOTECAN [Concomitant]
     Active Substance: IRINOTECAN
     Indication: COLON CANCER
     Dosage: VECTIBIX WITH IRINOTECAN - 4 TREATMENTS
     Route: 065
     Dates: start: 201803, end: 2018
  16. LONSURF [Concomitant]
     Active Substance: TIPIRACIL HYDROCHLORIDE\TRIFLURIDINE
     Indication: COLON CANCER
     Route: 065
     Dates: start: 201811, end: 201903
  17. FOLINIC ACID [Concomitant]
     Active Substance: LEUCOVORIN
     Dosage: ONGOING : NO; FOLFURI - AVASTIN FOR 3 MONTHS
     Route: 065
     Dates: start: 201610, end: 2017
  18. FLUOROURACIL. [Concomitant]
     Active Substance: FLUOROURACIL
     Indication: COLON CANCER
     Dosage: FOLFOX/AVASTIN FOR 6 MONTHS
     Route: 065
     Dates: start: 2014
  19. FLUOROURACIL. [Concomitant]
     Active Substance: FLUOROURACIL
     Dosage: FOLFOX - AVASTIN EVERY 2-3 WEEKS
     Route: 065
     Dates: start: 201805, end: 201811

REACTIONS (2)
  - Pleural effusion [Not Recovered/Not Resolved]
  - Metastases to peritoneum [Not Recovered/Not Resolved]

NARRATIVE: CASE EVENT DATE: 20190321
